FAERS Safety Report 24259074 (Version 3)
Quarter: 2024Q4

REPORT INFORMATION
  Report Type: Spontaneous
  Country: US (occurrence: US)
  Receive Date: 20240828
  Receipt Date: 20241003
  Transmission Date: 20250115
  Serious: Yes (Other)
  Sender: EMD SERONO INC
  Company Number: US-Merck Healthcare KGaA-2024044881

PATIENT
  Age: 28 Year
  Sex: Female
  Weight: 48 kg

DRUGS (2)
  1. OVIDREL [Suspect]
     Active Substance: CHORIOGONADOTROPIN ALFA
     Indication: In vitro fertilisation
  2. OVIDREL [Suspect]
     Active Substance: CHORIOGONADOTROPIN ALFA
     Dosage: FORM STRENGTH: 250 MCG / 1ML?PRE-FILLED SYRINGE
     Route: 058

REACTIONS (4)
  - Injection site injury [Unknown]
  - Complication of device removal [Not Recovered/Not Resolved]
  - Needle issue [Unknown]
  - Hypertension [Unknown]

NARRATIVE: CASE EVENT DATE: 20240815
